FAERS Safety Report 6854948-9 (Version None)
Quarter: 2010Q3

REPORT INFORMATION
  Report Type: 
  Country: None (occurrence: None)
  Receive Date: 20100717
  Receipt Date: 20080229
  Transmission Date: 20110219
  Serious: No
  Sender: FDA-Public Use
  Company Number: US-PFIZER INC-2008002878

PATIENT
  Sex: Female
  Weight: 58.2 kg

DRUGS (10)
  1. CHANTIX [Suspect]
     Indication: SMOKING CESSATION THERAPY
     Dates: start: 20080106
  2. PREVACID [Concomitant]
  3. NORVASC [Concomitant]
  4. ZOLOFT [Concomitant]
  5. VYTORIN [Concomitant]
     Dosage: 10/80MG
  6. ALLEGRA [Concomitant]
  7. ASPIRIN [Concomitant]
  8. ADVAIR DISKUS 100/50 [Concomitant]
     Route: 055
  9. ALBUTEROL [Concomitant]
     Route: 055
  10. SPIRIVA [Concomitant]
     Route: 055

REACTIONS (2)
  - CONSTIPATION [None]
  - DRUG DOSE OMISSION [None]
